FAERS Safety Report 8037821-2 (Version None)
Quarter: 2012Q1

REPORT INFORMATION
  Report Type: 
  Country: None (occurrence: None)
  Receive Date: 20120111
  Receipt Date: 20120109
  Transmission Date: 20120608
  Serious: Yes (Other)
  Sender: FDA-Public Use
  Company Number: US-TEVA-316571USA

PATIENT
  Sex: Male
  Weight: 71.732 kg

DRUGS (4)
  1. TREANDA [Suspect]
     Indication: LYMPHOMA
     Route: 042
     Dates: start: 20111001, end: 20111101
  2. SIMVASTATIN [Concomitant]
     Indication: BLOOD CHOLESTEROL
     Route: 048
  3. TERAZOSIN HCL [Concomitant]
     Indication: PROSTATIC DISORDER
  4. ATENOLOL [Concomitant]
     Indication: BLOOD PRESSURE

REACTIONS (4)
  - WHITE BLOOD CELL COUNT DECREASED [None]
  - DRUG INEFFECTIVE [None]
  - PLATELET COUNT DECREASED [None]
  - SPLEEN DISORDER [None]
